FAERS Safety Report 10152863 (Version 2)
Quarter: 2014Q2

REPORT INFORMATION
  Report Type: Spontaneous
  Country: IE (occurrence: IE)
  Receive Date: 20140505
  Receipt Date: 20140513
  Transmission Date: 20141212
  Serious: Yes (Hospitalization)
  Sender: FDA-Public Use
  Company Number: PHFR2014IE003115

PATIENT
  Age: 77 Year
  Sex: Male
  Weight: 69.9 kg

DRUGS (9)
  1. EXELON PATCH [Suspect]
     Indication: DEMENTIA ALZHEIMER^S TYPE
     Dosage: 4.6 MG, DAILY
     Route: 062
     Dates: start: 201204
  2. EXELON PATCH [Suspect]
     Dosage: 9.5 MG, DAILY
     Route: 062
     Dates: start: 201204
  3. MEMANTINE [Concomitant]
     Indication: DEMENTIA ALZHEIMER^S TYPE
     Dosage: 20 MG, DAILY
     Route: 048
  4. ATORVASTATIN [Concomitant]
     Dosage: 10 MG,DAILY
     Route: 048
  5. RISPERIDONE [Concomitant]
     Dosage: 1.5 MG, DAILY
     Route: 048
  6. TRAZODONE [Concomitant]
     Dosage: 100 MG,DAILY
     Route: 048
  7. PROPRANOLOL [Concomitant]
     Dosage: 10 MG, DAILY
     Route: 048
  8. LORAZEPAM [Concomitant]
     Indication: AGITATION
     Dosage: 0.75 MG, DAILY
     Route: 048
  9. DERACOXIB [Concomitant]
     Dosage: 60 MG,DAILY
     Route: 048

REACTIONS (4)
  - Psychotic disorder [Unknown]
  - Application site hypersensitivity [Recovering/Resolving]
  - Application site erythema [Recovering/Resolving]
  - Application site oedema [Recovered/Resolved]
